FAERS Safety Report 15582546 (Version 2)
Quarter: 2018Q4

REPORT INFORMATION
  Report Type: Spontaneous
  Country: JP (occurrence: JP)
  Receive Date: 20181105
  Receipt Date: 20181114
  Transmission Date: 20190205
  Serious: Yes (Hospitalization)
  Sender: FDA-Public Use
  Company Number: JP-BAXTER-2018BAX027048

PATIENT
  Age: 62 Year
  Sex: Male
  Weight: 50.3 kg

DRUGS (6)
  1. DEGLUDEC [Concomitant]
     Dosage: 2 UNITS IN THE MORNING ; AFTER THE CHANGE (MAY 2017)
     Route: 065
  2. ASPART [Concomitant]
     Indication: TYPE 1 DIABETES MELLITUS
     Dosage: 4 UNITS IN THE MORNING, 3 UNITS IN THE AFTERNOON, AND 2 UNITS IN THE EVENING ; BEFORE THE CHANGE (MA
     Route: 065
  3. EXTRANEAL [Suspect]
     Active Substance: CALCIUM CHLORIDE\ICODEXTRIN\MAGNESIUM CHLORIDE\SODIUM CHLORIDE\SODIUM LACTATE
     Indication: PERITONEAL DIALYSIS
     Dosage: 6:00 A.M. AND 4:00 P.M ; 10 HOURS
     Route: 033
     Dates: start: 2017
  4. EXTRANEAL [Suspect]
     Active Substance: CALCIUM CHLORIDE\ICODEXTRIN\MAGNESIUM CHLORIDE\SODIUM CHLORIDE\SODIUM LACTATE
     Indication: END STAGE RENAL DISEASE
     Dosage: 7:00 P.M. TO 7:00 A.M ; 12 HOURS
     Route: 033
     Dates: start: 2016, end: 2017
  5. DEGLUDEC [Concomitant]
     Indication: TYPE 1 DIABETES MELLITUS
     Dosage: 3 UNITS IN THE MORNING; BEFORE THE CHANGE (MARCH 2017)
     Route: 065
  6. ASPART [Concomitant]
     Dosage: 4 UNITS IN THE MORNING, 2 UNITS IN THE AFTERNOON, AND 5 UNITS IN THE EVENING ; AFTER THE CHANGE (MAY
     Route: 065

REACTIONS (2)
  - Hypoglycaemia [Recovered/Resolved]
  - Disease recurrence [Recovered/Resolved]

NARRATIVE: CASE EVENT DATE: 201610
